FAERS Safety Report 7478009-3 (Version None)
Quarter: 2011Q2

REPORT INFORMATION
  Report Type: 
  Country: None (occurrence: None)
  Receive Date: 20110511
  Receipt Date: 20110511
  Transmission Date: 20111010
  Serious: Yes (Other)
  Sender: FDA-Public Use
  Company Number: None

PATIENT
  Sex: Female

DRUGS (1)
  1. IMURAN [Suspect]
     Dosage: 200 MG PO
     Route: 048
     Dates: start: 20110504

REACTIONS (5)
  - NAUSEA [None]
  - PRODUCT NAME CONFUSION [None]
  - DRUG PRESCRIBING ERROR [None]
  - WRONG DRUG ADMINISTERED [None]
  - DRUG DISPENSING ERROR [None]
